FAERS Safety Report 20751311 (Version 1)
Quarter: 2022Q2

REPORT INFORMATION
  Report Type: Report from Study
  Country: US (occurrence: None)
  Receive Date: 20220426
  Receipt Date: 20220426
  Transmission Date: 20220720
  Serious: Yes (Other)
  Sender: FDA-Public Use
  Company Number: 2022A157011

PATIENT
  Sex: Female

DRUGS (1)
  1. CALQUENCE [Suspect]
     Active Substance: ACALABRUTINIB
     Indication: Chronic lymphocytic leukaemia
     Route: 048

REACTIONS (5)
  - Platelet count abnormal [Unknown]
  - Renal impairment [Recovering/Resolving]
  - Liver function test abnormal [Recovering/Resolving]
  - Feeling abnormal [Unknown]
  - Laziness [Unknown]
